FAERS Safety Report 8164475-7 (Version None)
Quarter: 2012Q1

REPORT INFORMATION
  Report Type: 
  Country: None (occurrence: None)
  Receive Date: 20120224
  Receipt Date: 20120215
  Transmission Date: 20120608
  Serious: Yes (Hospitalization)
  Sender: FDA-Public Use
  Company Number: BR-ASTRAZENECA-2011SE36960

PATIENT
  Age: 50 Year
  Sex: Male
  Weight: 78 kg

DRUGS (2)
  1. ATACAND HCT [Suspect]
     Indication: HYPERTENSION
     Dosage: 16/12.5 MG OD
     Route: 048
     Dates: start: 20090101, end: 20110201
  2. ATACAND HCT [Suspect]
     Indication: HYPERTENSION
     Dosage: 16MG/2.5MG, DAILY
     Route: 048
     Dates: start: 20110201

REACTIONS (6)
  - DYSLIPIDAEMIA [None]
  - THYROIDITIS [None]
  - BLOOD PRESSURE INADEQUATELY CONTROLLED [None]
  - GLUCOSE TOLERANCE IMPAIRED [None]
  - BONE MARROW TUMOUR CELL INFILTRATION [None]
  - DRUG INEFFECTIVE [None]
